FAERS Safety Report 4476902-7 (Version None)
Quarter: 2004Q4

REPORT INFORMATION
  Report Type: 
  Country: None (occurrence: None)
  Receive Date: 20041013
  Receipt Date: 20040927
  Transmission Date: 20050328
  Serious: Yes (Death)
  Sender: FDA-Public Use
  Company Number: DSA_25059_2004

PATIENT
  Age: 85 Year
  Sex: Male

DRUGS (4)
  1. TEVETEN [Suspect]
     Indication: HYPERTENSION
     Dosage: DF PO
     Route: 048
     Dates: start: 19951117, end: 19960426
  2. CORDARONE [Concomitant]
  3. HALDOL [Concomitant]
  4. MELLERIL      DRESDEN [Concomitant]

REACTIONS (2)
  - MALAISE [None]
  - SUDDEN DEATH [None]
